FAERS Safety Report 11322607 (Version 4)
Quarter: 2015Q3

REPORT INFORMATION
  Report Type: Spontaneous
  Country: US (occurrence: US)
  Receive Date: 20150730
  Receipt Date: 20150911
  Transmission Date: 20151125
  Serious: No
  Sender: FDA-Public Use
  Company Number: US-AMGEN-USASP2015074748

PATIENT
  Age: 79 Year
  Sex: Female

DRUGS (1)
  1. ENBREL [Suspect]
     Active Substance: ETANERCEPT
     Indication: RHEUMATOID ARTHRITIS
     Dosage: 50 MG, QWK
     Route: 065

REACTIONS (6)
  - Drug ineffective [Unknown]
  - Device issue [Unknown]
  - Malaise [Unknown]
  - Dehydration [Unknown]
  - Muscle strain [Unknown]
  - Pain [Unknown]

NARRATIVE: CASE EVENT DATE: 20150723
